FAERS Safety Report 6905796-2 (Version None)
Quarter: 2010Q3

REPORT INFORMATION
  Report Type: 
  Country: None (occurrence: None)
  Receive Date: 20100804
  Receipt Date: 20100727
  Transmission Date: 20110219
  Serious: Yes (Other)
  Sender: FDA-Public Use
  Company Number: PL-ROCHE-686042

PATIENT
  Sex: Male
  Weight: 108 kg

DRUGS (3)
  1. PEGINTERFERON ALFA-2A [Suspect]
     Indication: HEPATITIS C
     Dosage: FORM PER PROTOCOL
     Route: 058
     Dates: start: 20091217, end: 20100127
  2. RIBAVIRIN [Suspect]
     Indication: HEPATITIS C
     Route: 048
     Dates: start: 20091217, end: 20100127
  3. BLINDED TMC435 [Suspect]
     Indication: HEPATITIS C
     Dosage: DOSE BLINDED, FREQUENCY: ONCE A DAY
     Route: 048
     Dates: start: 20091217, end: 20100127

REACTIONS (1)
  - ABORTION SPONTANEOUS [None]
